FAERS Safety Report 6551616-8 (Version None)
Quarter: 2010Q1

REPORT INFORMATION
  Report Type: 
  Country: None (occurrence: None)
  Receive Date: 20100126
  Receipt Date: 20100120
  Transmission Date: 20100710
  Serious: Yes (Hospitalization)
  Sender: FDA-Public Use
  Company Number: FR-KINGPHARMUSA00001-K201000063

PATIENT
  Age: 78 Year
  Sex: Male

DRUGS (7)
  1. ALTACE [Suspect]
     Dosage: 10 MG, QD
     Route: 048
     Dates: end: 20091126
  2. IKOREL [Suspect]
     Dosage: 20 MG, BID
     Route: 048
     Dates: end: 20091125
  3. PREVISCAN [Concomitant]
     Dosage: UNK
     Dates: start: 20090425, end: 20091127
  4. DIAMICRON [Concomitant]
     Dosage: UNK
  5. PRAVASTATIN [Concomitant]
     Dosage: 20 MG, QD
  6. NEXIUM [Concomitant]
     Dosage: 40 MG, QD
     Route: 048
  7. SUTENT [Concomitant]
     Dosage: UNK
     Dates: start: 20091030, end: 20091125

REACTIONS (10)
  - ANAEMIA [None]
  - APHTHOUS STOMATITIS [None]
  - DIZZINESS [None]
  - MELAENA [None]
  - ORTHOSTATIC HYPOTENSION [None]
  - THROMBOCYTOPENIA [None]
  - TOOTHACHE [None]
  - VERTIGO [None]
  - VESTIBULAR NEURONITIS [None]
  - YELLOW SKIN [None]
